FAERS Safety Report 7531316-8 (Version None)
Quarter: 2011Q2

REPORT INFORMATION
  Report Type: 
  Country: None (occurrence: None)
  Receive Date: 20110608
  Receipt Date: 20110603
  Transmission Date: 20111010
  Serious: Yes (Hospitalization)
  Sender: FDA-Public Use
  Company Number: JP-SANOFI-AVENTIS-2011SA031675

PATIENT
  Age: 60 Year
  Sex: Female
  Weight: 100 kg

DRUGS (12)
  1. LOXONIN [Concomitant]
     Route: 048
  2. MUCOSTA [Concomitant]
     Route: 048
  3. PREDNISOLONE [Concomitant]
  4. ALOSITOL [Concomitant]
     Route: 048
  5. PREDNISOLONE [Concomitant]
  6. LASIX [Suspect]
     Route: 048
  7. PREDNISOLONE [Concomitant]
  8. COLCHICINE [Concomitant]
  9. ALOSITOL [Concomitant]
     Route: 048
  10. PREDNISOLONE [Concomitant]
  11. PREDNISOLONE [Concomitant]
  12. ALOSITOL [Concomitant]
     Route: 048

REACTIONS (2)
  - HYPOKALAEMIA [None]
  - ALKALOSIS [None]
